FAERS Safety Report 4306723-7 (Version None)
Quarter: 2004Q1

REPORT INFORMATION
  Report Type: 
  Country: None (occurrence: None)
  Receive Date: 20040225
  Receipt Date: 20031124
  Transmission Date: 20041129
  Serious: No
  Sender: FDA-Public Use
  Company Number: US-BRISTOL-MYERS SQUIBB COMPANY-12468021

PATIENT
  Sex: Female

DRUGS (1)
  1. EXCEDRIN (MIGRAINE) [Suspect]
     Dates: start: 20031123, end: 20031123

REACTIONS (4)
  - ERYTHEMA [None]
  - PALLOR [None]
  - PRURITUS [None]
  - URTICARIA [None]
